FAERS Safety Report 8919201 (Version 1)
Quarter: 2012Q4

REPORT INFORMATION
  Report Type: 
  Country: US (occurrence: US)
  Receive Date: 20121121
  Receipt Date: 20121121
  Transmission Date: 20130627
  Serious: Yes (Other)
  Sender: FDA-Public Use
  Company Number: US-PFIZER INC-2012291107

PATIENT
  Sex: Male

DRUGS (2)
  1. GEODON [Suspect]
     Indication: BIPOLAR DISORDER
     Dosage: UNK
  2. ARICEPT [Suspect]
     Dosage: UNK

REACTIONS (3)
  - Drug dose omission [Unknown]
  - Memory impairment [Unknown]
  - Drug dispensing error [Unknown]
